FAERS Safety Report 9246191 (Version 1)
Quarter: 2013Q2

REPORT INFORMATION
  Report Type: Spontaneous
  Country: US (occurrence: US)
  Receive Date: 20130422
  Receipt Date: 20130422
  Transmission Date: 20140414
  Serious: No
  Sender: FDA-Public Use
  Company Number: US-PFIZER INC-2013120753

PATIENT
  Age: 66 Year
  Sex: Female

DRUGS (8)
  1. XELJANZ [Suspect]
     Indication: OSTEOARTHRITIS
     Dosage: 5 MG, 2X/DAY
     Route: 048
     Dates: start: 201303
  2. CELEBREX [Concomitant]
     Dosage: 200 MG, UNK
  3. CENTRUM SILVER [Concomitant]
     Dosage: UNK
  4. PREDNISONE [Concomitant]
     Dosage: 5 MG, UNK
  5. LEFLUNOMIDE [Concomitant]
     Dosage: 20 MG, UNK
  6. FERROUS SULFATE [Concomitant]
     Dosage: 325 MG, UNK
  7. SULFASALAZINE [Concomitant]
     Dosage: 500 MG, UNK
  8. OMEPRAZOLE [Concomitant]
     Dosage: 20 MG, UNK

REACTIONS (1)
  - Oropharyngeal pain [Unknown]
